FAERS Safety Report 6572792-7 (Version None)
Quarter: 2010Q1

REPORT INFORMATION
  Report Type: 
  Country: None (occurrence: None)
  Receive Date: 20100205
  Receipt Date: 20100129
  Transmission Date: 20100710
  Serious: Yes (Hospitalization)
  Sender: FDA-Public Use
  Company Number: US-BAXTER-2010BH001207

PATIENT
  Age: 67 Year
  Sex: Male
  Weight: 127 kg

DRUGS (3)
  1. STERILE WATER [Suspect]
     Indication: BLADDER IRRIGATION
     Route: 065
     Dates: start: 20090401, end: 20091201
  2. STERILE WATER [Suspect]
     Indication: PROPHYLAXIS URINARY TRACT INFECTION
     Route: 065
     Dates: start: 20090401, end: 20091201
  3. OXYBUTYNIN [Concomitant]
     Indication: DRUG USE FOR UNKNOWN INDICATION
     Route: 065
     Dates: start: 20080101

REACTIONS (5)
  - BLADDER PAIN [None]
  - HAEMATURIA [None]
  - PYREXIA [None]
  - URINARY TRACT INFECTION [None]
  - URINARY TRACT PAIN [None]
